FAERS Safety Report 21656416 (Version 3)
Quarter: 2025Q3

REPORT INFORMATION
  Report Type: Spontaneous
  Country: EU (occurrence: EU)
  Receive Date: 20221129
  Receipt Date: 20250805
  Transmission Date: 20251021
  Serious: Yes (Hospitalization, Other)
  Sender: AUROBINDO
  Company Number: EU-Zentiva-2022-ZT-011490

PATIENT
  Age: 45 Year
  Sex: Male

DRUGS (5)
  1. CELECOXIB [Suspect]
     Active Substance: CELECOXIB
     Indication: Spinal osteoarthritis
     Dosage: 200 MILLIGRAM, ONCE A DAY
     Route: 065
  2. ETORICOXIB [Suspect]
     Active Substance: ETORICOXIB
     Indication: Spinal osteoarthritis
     Dosage: 90 MILLIGRAM, ONCE A DAY
     Route: 065
  3. GOLIMUMAB [Suspect]
     Active Substance: GOLIMUMAB
     Indication: Spinal osteoarthritis
     Route: 065
  4. GOLIMUMAB [Suspect]
     Active Substance: GOLIMUMAB
     Indication: Axial spondyloarthritis
  5. URSODIOL [Concomitant]
     Active Substance: URSODIOL
     Indication: Primary biliary cholangitis
     Route: 065

REACTIONS (5)
  - Renal impairment [Recovered/Resolved]
  - Asthenia [Recovered/Resolved]
  - Tubulointerstitial nephritis [Recovered/Resolved]
  - Blood immunoglobulin M increased [Recovered/Resolved]
  - Proteinuria [Recovered/Resolved]
